FAERS Safety Report 10298984 (Version 1)
Quarter: 2014Q3

REPORT INFORMATION
  Report Type: Spontaneous
  Country: GR (occurrence: GR)
  Receive Date: 20140711
  Receipt Date: 20140711
  Transmission Date: 20150326
  Serious: Yes (Other)
  Sender: FDA-Public Use
  Company Number: GR-WATSON-2014-15007

PATIENT
  Age: 33 Year
  Sex: Female

DRUGS (2)
  1. SALINE [Suspect]
     Active Substance: SODIUM CHLORIDE
     Indication: SENSITISATION
     Dosage: UNK,SINGLE
     Route: 023
  2. PROGESTERONE (UNKNOWN) [Suspect]
     Active Substance: PROGESTERONE
     Indication: SENSITISATION
     Dosage: UNK,SINGLE
     Route: 023

REACTIONS (1)
  - Anaphylactic reaction [Recovered/Resolved]
